FAERS Safety Report 8914494 (Version 1)
Quarter: 2012Q4

REPORT INFORMATION
  Report Type: Report from Study
  Country: JP (occurrence: JP)
  Receive Date: 20121116
  Receipt Date: 20121116
  Transmission Date: 20130627
  Serious: Yes (Other)
  Sender: FDA-Public Use
  Company Number: JP-UCBSA-070907

PATIENT
  Age: 46 Year
  Sex: Male
  Weight: 83 kg

DRUGS (6)
  1. E KEPPRA [Suspect]
     Indication: SIMPLE PARTIAL SEIZURES
     Route: 048
     Dates: start: 20111219
  2. E KEPPRA [Suspect]
     Indication: SIMPLE PARTIAL SEIZURES
     Route: 048
     Dates: start: 20110829, end: 20111218
  3. E KEPPRA [Suspect]
     Indication: SIMPLE PARTIAL SEIZURES
     Route: 048
     Dates: start: 20110531, end: 20110828
  4. DEPAKENE-R [Concomitant]
     Indication: SIMPLE PARTIAL SEIZURES
     Dosage: DAILY DOSE:1200MG
     Route: 048
     Dates: start: 20101206
  5. BLOPRESS [Concomitant]
     Dosage: DAILY DOSE:8 MG
     Route: 048
     Dates: start: 20100510
  6. NORVASC [Concomitant]
     Dosage: DAILY DOSE: 5MG
     Route: 048
     Dates: start: 20100927

REACTIONS (1)
  - Blood creatine phosphokinase increased [Recovered/Resolved]
